FAERS Safety Report 7551547-0 (Version None)
Quarter: 2011Q2

REPORT INFORMATION
  Report Type: 
  Country: None (occurrence: None)
  Receive Date: 20110616
  Receipt Date: 20110609
  Transmission Date: 20111010
  Serious: Yes (Hospitalization)
  Sender: FDA-Public Use
  Company Number: US-B.I. PHARMACEUTICALS,INC./RIDGEFIELD-2011-BP-11558BP

PATIENT
  Age: 82 Year
  Sex: Female
  Weight: 57 kg

DRUGS (14)
  1. LOVENOX [Concomitant]
     Indication: ANTICOAGULANT THERAPY
  2. POTASSIUM CHLORIDE [Concomitant]
     Dosage: 40 MEQ
     Route: 048
  3. SPIRONOLACTONE [Concomitant]
     Indication: HYPERTENSION
  4. DIGOXIN [Concomitant]
     Indication: ARRHYTHMIA
     Dosage: 0.125 MG
  5. SYNTHROID [Concomitant]
     Indication: HYPOTHYROIDISM
     Dosage: 175 MEQ
  6. PRAVASTATIN [Concomitant]
  7. ARICEPT [Concomitant]
     Indication: DEMENTIA ALZHEIMER'S TYPE
     Dosage: 5 MG
  8. COREG [Concomitant]
     Indication: HYPERTENSION
  9. FENOFIBRATE [Concomitant]
     Indication: BLOOD CHOLESTEROL INCREASED
  10. ALLOPURINOL [Concomitant]
     Indication: GOUT
     Dosage: 100 MG
  11. FUROSEMIDE [Concomitant]
     Indication: HYPERTENSION
  12. SIMVASTATIN [Concomitant]
     Indication: BLOOD CHOLESTEROL INCREASED
     Dosage: 20 MG
  13. PRADAXA [Suspect]
     Indication: ATRIAL FIBRILLATION
     Dosage: 150 MG
     Route: 048
  14. METOLAZONE [Concomitant]
     Indication: HYPERTENSION

REACTIONS (7)
  - WEIGHT DECREASED [None]
  - DECREASED APPETITE [None]
  - GAIT DISTURBANCE [None]
  - DYSPNOEA [None]
  - ASTHENIA [None]
  - FALL [None]
  - HEAD INJURY [None]
